FAERS Safety Report 7965772-8 (Version None)
Quarter: 2011Q4

REPORT INFORMATION
  Report Type: 
  Country: None (occurrence: None)
  Receive Date: 20111208
  Receipt Date: 20111202
  Transmission Date: 20120403
  Serious: Yes (Other)
  Sender: FDA-Public Use
  Company Number: CA-ELI_LILLY_AND_COMPANY-CA201112000703

PATIENT
  Sex: Male

DRUGS (4)
  1. LANTUS [Concomitant]
     Dosage: 30 U, EACH MORNING
  2. VICTOZA [Concomitant]
     Dosage: UNK
     Dates: end: 20111125
  3. HUMALOG [Suspect]
     Dosage: 6 U, TID
  4. METFORMIN HCL [Concomitant]
     Dosage: UNK

REACTIONS (9)
  - GASTRIC DISORDER [None]
  - LUNG INFECTION [None]
  - MACULAR DEGENERATION [None]
  - STRESS [None]
  - INSULIN RESISTANCE [None]
  - BLOOD GLUCOSE DECREASED [None]
  - VISUAL IMPAIRMENT [None]
  - BLOOD GLUCOSE INCREASED [None]
  - INCORRECT PRODUCT STORAGE [None]
